FAERS Safety Report 5704573-8 (Version None)
Quarter: 2008Q2

REPORT INFORMATION
  Report Type: 
  Country: None (occurrence: None)
  Receive Date: 20080411
  Receipt Date: 20080411
  Transmission Date: 20081010
  Serious: Yes (Hospitalization)
  Sender: FDA-Public Use
  Company Number: None

PATIENT
  Sex: Male
  Weight: 27.6 kg

DRUGS (4)
  1. CYTARABINE [Suspect]
     Dosage: 90 MG
     Dates: end: 20080403
  2. LEUCOVORIN CALCIUM [Suspect]
     Dosage: 1785 MG
     Dates: end: 20080407
  3. METHOTREXATE [Suspect]
     Dosage: 8000 MG
     Dates: end: 20080329
  4. RITUXIMAB (MOAB C2B8 ANTI CD20, CHIMERIC) [Suspect]
     Dosage: 750 MG
     Dates: end: 20080329

REACTIONS (4)
  - CONVULSION [None]
  - MUSCLE TWITCHING [None]
  - RESPIRATORY DEPRESSION [None]
  - UNRESPONSIVE TO STIMULI [None]
